FAERS Safety Report 11757433 (Version 1)
Quarter: 2015Q4

REPORT INFORMATION
  Report Type: Spontaneous
  Country: CZ (occurrence: CZ)
  Receive Date: 20151120
  Receipt Date: 20151120
  Transmission Date: 20160304
  Serious: Yes (Life-Threatening)
  Sender: FDA-Public Use
  Company Number: CZ-ACTAVIS-2015-24949

PATIENT
  Age: 46 Year
  Sex: Female

DRUGS (10)
  1. MACMIROR [Concomitant]
     Indication: VAGINAL INFECTION
     Dosage: UNK
     Route: 065
     Dates: start: 20150909
  2. NEOFOLIN [Concomitant]
     Indication: MENORRHAGIA
     Dosage: TWICE A DAY
     Route: 065
     Dates: start: 20150909
  3. PAMBA                              /00934201/ [Concomitant]
     Indication: MENORRHAGIA
     Dosage: TWICE A DAY
     Route: 065
     Dates: start: 20150909
  4. VITAMIN C [Concomitant]
     Active Substance: ASCORBIC ACID
     Dosage: UNK
     Route: 065
     Dates: start: 20151007
  5. NORETHISTERONE ACETATE [Suspect]
     Active Substance: NORETHINDRONE ACETATE
     Dosage: TWICE A DAY
     Route: 065
     Dates: start: 20151007
  6. VITAMIN C [Concomitant]
     Active Substance: ASCORBIC ACID
     Indication: MENORRHAGIA
     Dosage: UNK
     Route: 065
     Dates: start: 20150909
  7. NORETHISTERONE ACETATE [Suspect]
     Active Substance: NORETHINDRONE ACETATE
     Indication: MENORRHAGIA
     Dosage: UNK
     Route: 065
     Dates: start: 20150909
  8. PAMBA                              /00934201/ [Concomitant]
     Dosage: TWICE A DAY
     Route: 065
     Dates: start: 20151007
  9. MACMIROR [Concomitant]
     Dosage: UNK
     Route: 065
     Dates: start: 20151007
  10. LEVOSERT [Suspect]
     Active Substance: LEVONORGESTREL
     Indication: CHEMICAL CONTRACEPTION
     Dosage: 20 MCG, DAILY
     Route: 015
     Dates: start: 20150729, end: 20151020

REACTIONS (1)
  - Venous thrombosis limb [Unknown]

NARRATIVE: CASE EVENT DATE: 20151019
